FAERS Safety Report 16286646 (Version 1)
Quarter: 2019Q2

REPORT INFORMATION
  Report Type: Spontaneous
  Country: US (occurrence: US)
  Receive Date: 20190507
  Receipt Date: 20190507
  Transmission Date: 20190711
  Serious: Yes (Hospitalization)
  Sender: FDA-Public Use
  Company Number: None

PATIENT
  Age: 76 Year
  Sex: Male

DRUGS (9)
  1. CEPHALEXIN. [Concomitant]
     Active Substance: CEPHALEXIN
  2. XOLAIR [Suspect]
     Active Substance: OMALIZUMAB
     Indication: ASTHMA
     Dosage: ?          OTHER FREQUENCY:EVERY 2 WEEKS;?
     Route: 058
     Dates: start: 20180125
  3. ALBUTEROL. [Concomitant]
     Active Substance: ALBUTEROL
  4. AMOX/K CLAV [Concomitant]
     Active Substance: AMOXICILLIN\CLAVULANATE POTASSIUM
  5. GABAPENTIN. [Concomitant]
     Active Substance: GABAPENTIN
  6. RABEPRAZOLE [Concomitant]
     Active Substance: RABEPRAZOLE
  7. OXYCODONE [Concomitant]
     Active Substance: OXYCODONE
  8. MOVANTIK [Concomitant]
     Active Substance: NALOXEGOL OXALATE
  9. TRAMADOL HCL [Concomitant]
     Active Substance: TRAMADOL HYDROCHLORIDE

REACTIONS (1)
  - Toe amputation [None]

NARRATIVE: CASE EVENT DATE: 20190419
